FAERS Safety Report 12487813 (Version 1)
Quarter: 2016Q2

REPORT INFORMATION
  Report Type: Spontaneous
  Country: GB (occurrence: GB)
  Receive Date: 20160622
  Receipt Date: 20160622
  Transmission Date: 20160815
  Serious: Yes (Other)
  Sender: FDA-Public Use
  Company Number: GB-DRREDDYS-GER/UKI/16/0080714

PATIENT
  Age: 36 Year
  Sex: Female
  Weight: 127 kg

DRUGS (3)
  1. TRAMADOL HYDROCHLORIDE. [Concomitant]
     Active Substance: TRAMADOL HYDROCHLORIDE
     Indication: PRODUCT USED FOR UNKNOWN INDICATION
  2. SUMATRIPTAN 50MG FILM-COATED TABLETS, DR. REDDY^S [Suspect]
     Active Substance: SUMATRIPTAN
     Indication: MIGRAINE
     Route: 048
     Dates: start: 20160323
  3. SUMATRIPTAN 50MG FILM-COATED TABLETS, DR. REDDY^S [Suspect]
     Active Substance: SUMATRIPTAN
     Route: 048
     Dates: start: 20160423, end: 20160502

REACTIONS (6)
  - Paraesthesia oral [Recovered/Resolved]
  - Nausea [Recovered/Resolved]
  - Malaise [Recovered/Resolved]
  - Dysphagia [Recovered/Resolved]
  - Asthenia [Recovered/Resolved]
  - Gastrooesophageal reflux disease [Recovered/Resolved]

NARRATIVE: CASE EVENT DATE: 20160423
